FAERS Safety Report 14447304 (Version 1)
Quarter: 2018Q1

REPORT INFORMATION
  Report Type: Spontaneous
  Country: US (occurrence: US)
  Receive Date: 20180126
  Receipt Date: 20180126
  Transmission Date: 20180509
  Serious: No
  Sender: FDA-Public Use
  Company Number: US-009507513-1801USA004005

PATIENT
  Sex: Female

DRUGS (1)
  1. NEXPLANON [Suspect]
     Active Substance: ETONOGESTREL
     Dosage: 1 DF, UNK
     Dates: start: 20150430, end: 20170523

REACTIONS (4)
  - Device deployment issue [Recovered/Resolved]
  - Implant site pain [Recovering/Resolving]
  - Complication associated with device [Recovered/Resolved]
  - Device difficult to use [Recovered/Resolved]
